FAERS Safety Report 18081124 (Version 3)
Quarter: 2020Q4

REPORT INFORMATION
  Report Type: Spontaneous
  Country: JP (occurrence: JP)
  Receive Date: 20200728
  Receipt Date: 20201117
  Transmission Date: 20210113
  Serious: Yes (Life-Threatening, Other)
  Sender: FDA-Public Use
  Company Number: JP-PFIZER INC-2020285249

PATIENT
  Age: 78 Year
  Sex: Male

DRUGS (4)
  1. IRINOTECAN HCL [Suspect]
     Active Substance: IRINOTECAN HYDROCHLORIDE
     Indication: RECTAL CANCER METASTATIC
     Dosage: UNK, CYCLIC
  2. CALCIUM FOLINATE [Concomitant]
     Active Substance: LEUCOVORIN CALCIUM
     Indication: RECTAL CANCER METASTATIC
  3. TEGAFUR GIMERACIL AND OTERACIL POTASSIUM [Suspect]
     Active Substance: GIMERACIL\OTERACIL\TEGAFUR
     Indication: RECTAL CANCER METASTATIC
     Dosage: UNK, CYCLIC
  4. TEGAFUR [Concomitant]
     Active Substance: TEGAFUR
     Indication: RECTAL CANCER METASTATIC
     Dosage: UNK, CYCLIC (1 CYCLE)

REACTIONS (4)
  - Cerebral infarction [Unknown]
  - Blister [Unknown]
  - Neuralgia [Unknown]
  - Herpes zoster [Unknown]
